FAERS Safety Report 5767273-4 (Version None)
Quarter: 2008Q2

REPORT INFORMATION
  Report Type: 
  Country: None (occurrence: None)
  Receive Date: 20080609
  Receipt Date: 20080527
  Transmission Date: 20081010
  Serious: Yes (Death, Hospitalization)
  Sender: FDA-Public Use
  Company Number: 001132

PATIENT
  Age: 30 Year
  Sex: Female

DRUGS (4)
  1. BUSULFEX [Suspect]
     Indication: STEM CELL TRANSPLANT
     Dosage: 16 ML, INTRAVENOUS
     Route: 042
  2. CYCLOSPORINE [Suspect]
  3. CYCLOPHOSPHAMIDE [Concomitant]
  4. METHOTREXATE [Concomitant]

REACTIONS (23)
  - ALOPECIA [None]
  - ANAEMIA [None]
  - BLOOD CREATININE INCREASED [None]
  - BLOOD LACTATE DEHYDROGENASE INCREASED [None]
  - COMPLICATIONS OF BONE MARROW TRANSPLANT [None]
  - CONFUSIONAL STATE [None]
  - CYTOMEGALOVIRUS VIRAEMIA [None]
  - DYSARTHRIA [None]
  - DYSPNOEA [None]
  - HAEMATURIA [None]
  - HAEMODIALYSIS [None]
  - MUCOSAL INFLAMMATION [None]
  - MYALGIA [None]
  - PERICARDIAL EFFUSION [None]
  - PETECHIAE [None]
  - PROTEINURIA [None]
  - PROTHROMBIN TIME PROLONGED [None]
  - PYREXIA [None]
  - RENAL IMPAIRMENT [None]
  - RESPIRATORY DISTRESS [None]
  - THROMBOCYTOPENIA [None]
  - THROMBOTIC THROMBOCYTOPENIC PURPURA [None]
  - VISUAL DISTURBANCE [None]
